FAERS Safety Report 4475612-X (Version None)
Quarter: 2004Q3

REPORT INFORMATION
  Report Type: 
  Country: None (occurrence: None)
  Receive Date: 20040923
  Receipt Date: 20040713
  Transmission Date: 20050211
  Serious: No
  Sender: FDA-Public Use
  Company Number: USA040772492

PATIENT
  Age: 81 Year
  Sex: Female

DRUGS (3)
  1. FORTEO [Suspect]
     Indication: OSTEOPOROSIS
     Dosage: 20 UG DAY
     Dates: start: 20040602
  2. CELEBREX [Concomitant]
  3. NORVASC [Concomitant]

REACTIONS (3)
  - CONSTIPATION [None]
  - MUSCLE CRAMP [None]
  - OEDEMA PERIPHERAL [None]
